FAERS Safety Report 14257658 (Version 2)
Quarter: 2017Q4

REPORT INFORMATION
  Report Type: Spontaneous
  Country: PL (occurrence: PL)
  Receive Date: 20171207
  Receipt Date: 20171209
  Transmission Date: 20180321
  Serious: Yes (Death, Other)
  Sender: FDA-Public Use
  Company Number: PL-CIPLA LTD.-2017PL21496

PATIENT

DRUGS (12)
  1. CAPECITABINE. [Suspect]
     Active Substance: CAPECITABINE
     Dosage: 1250 MG/M2, BID, 14 DAYS, 4 COURSES EVERY 21 DAYS
     Route: 065
  2. FOLINIC ACID [Suspect]
     Active Substance: LEUCOVORIN
     Indication: MUCINOUS ADENOCARCINOMA OF APPENDIX
     Dosage: 200 MG/M2, A 2-HOUR INFUSION, EVERY 14 DAYS, 12 COURSES
     Dates: start: 2011, end: 201110
  3. FOLINIC ACID [Suspect]
     Active Substance: LEUCOVORIN
     Dosage: 200 MG/M2, A 2-HOUR INFUSION
     Dates: start: 201202, end: 201207
  4. OXALIPLATIN. [Suspect]
     Active Substance: OXALIPLATIN
     Indication: MUCINOUS ADENOCARCINOMA OF APPENDIX
     Dosage: 85 MG/M2 IN A 2-HOUR INFUSION, CYCLICAL
     Dates: start: 201202, end: 201207
  5. REGORAFENIB [Suspect]
     Active Substance: REGORAFENIB
     Dosage: 160 MG, QD, EACH FOR 21 DAY CYCLE EVERY 28 DAYS
     Route: 048
  6. FLUOROURACIL. [Suspect]
     Active Substance: FLUOROURACIL
     Indication: MUCINOUS ADENOCARCINOMA OF APPENDIX
     Dosage: 400 MG/M2, EVERY 14 DAYS, 12 COURSES
     Route: 040
     Dates: start: 2011, end: 201110
  7. FLUOROURACIL. [Suspect]
     Active Substance: FLUOROURACIL
     Dosage: 400 MG/M2
     Route: 040
     Dates: start: 201202, end: 201207
  8. FLUOROURACIL. [Suspect]
     Active Substance: FLUOROURACIL
     Dosage: 600 MG/M2, A 48-HOUR INFUSION
     Dates: start: 201202, end: 201207
  9. FLUOROURACIL. [Suspect]
     Active Substance: FLUOROURACIL
     Dosage: 600 MG/M2, EVERY 14 DAYS, 12 COURSES
     Dates: start: 2011, end: 201110
  10. BEVACIZUMAB. [Suspect]
     Active Substance: BEVACIZUMAB
     Indication: MUCINOUS ADENOCARCINOMA OF APPENDIX
     Dosage: 10 MG/KG, EVERY 14 DAYS, 12 COURSES
     Route: 065
     Dates: start: 2011, end: 201110
  11. IRINOTECAN [Suspect]
     Active Substance: IRINOTECAN
     Indication: MUCINOUS ADENOCARCINOMA OF APPENDIX
     Dosage: 150 MG/M2, EVERY 14 DAYS, 12 COURSES
     Route: 065
     Dates: start: 2011, end: 201110
  12. REGORAFENIB [Suspect]
     Active Substance: REGORAFENIB
     Dosage: 80 MG, QD
     Route: 048

REACTIONS (14)
  - Death [Fatal]
  - Neutropenia [Unknown]
  - Anaemia [Unknown]
  - Hemiplegia [Unknown]
  - Urogenital fistula [Unknown]
  - Drug ineffective [Unknown]
  - Weight decreased [Unknown]
  - Disease recurrence [Unknown]
  - Urinary tract infection [Unknown]
  - General physical health deterioration [Unknown]
  - Enterovesical fistula [Unknown]
  - Leukocytosis [Unknown]
  - Metastases to lymph nodes [Unknown]
  - Disease progression [Unknown]
